FAERS Safety Report 9744048 (Version 1)
Quarter: 2013Q4

REPORT INFORMATION
  Report Type: Spontaneous
  Country: US (occurrence: US)
  Receive Date: 20131210
  Receipt Date: 20131210
  Transmission Date: 20140711
  Serious: Yes (Other)
  Sender: FDA-Public Use
  Company Number: US-GLAXOSMITHKLINE-A1052912A

PATIENT
  Age: 71 Year
  Sex: Female

DRUGS (1)
  1. COREG CR [Suspect]
     Indication: CARDIAC DISORDER
     Dosage: 10MG UNKNOWN
     Route: 065
     Dates: start: 20091022

REACTIONS (1)
  - Cardiac pacemaker insertion [Unknown]
